FAERS Safety Report 20345910 (Version 1)
Quarter: 2022Q1

REPORT INFORMATION
  Report Type: Spontaneous
  Country: TH (occurrence: TH)
  Receive Date: 20220118
  Receipt Date: 20220118
  Transmission Date: 20220423
  Serious: Yes (Hospitalization)
  Sender: FDA-Public Use
  Company Number: TH-PFIZER INC-202200011921

PATIENT
  Age: 54 Year
  Sex: Male

DRUGS (1)
  1. INLYTA [Suspect]
     Active Substance: AXITINIB
     Indication: Renal cell carcinoma
     Dosage: 5 MG, TWICE DAILY
     Route: 048
     Dates: start: 20210619

REACTIONS (1)
  - Pulmonary oedema [Unknown]
